FAERS Safety Report 6214396-1 (Version None)
Quarter: 2009Q2

REPORT INFORMATION
  Report Type: 
  Country: None (occurrence: None)
  Receive Date: 20090602
  Receipt Date: 20090522
  Transmission Date: 20091009
  Serious: Yes (Other)
  Sender: FDA-Public Use
  Company Number: STI-2009-01107

PATIENT
  Age: 23 Year
  Sex: Male

DRUGS (1)
  1. 517A CLINDAMYCIN(CLINDAMYCIN) (CLINDAMYCIN PHOSPHATE) [Suspect]
     Indication: ACNE
     Dosage: (1 IN 1 DAYS) TOPICAL
     Route: 061
     Dates: start: 20090201

REACTIONS (6)
  - DRY SKIN [None]
  - ERYTHEMA [None]
  - INFLAMMATION [None]
  - PRURITUS [None]
  - RASH [None]
  - SKIN IRRITATION [None]
